FAERS Safety Report 6478079-5 (Version None)
Quarter: 2009Q4

REPORT INFORMATION
  Report Type: 
  Country: None (occurrence: None)
  Receive Date: 20091207
  Receipt Date: 20091124
  Transmission Date: 20100525
  Serious: Yes (Other)
  Sender: FDA-Public Use
  Company Number: JP-MERCK-0911USA00470

PATIENT
  Age: 84 Year
  Sex: Female

DRUGS (8)
  1. FOSAMAX [Suspect]
     Indication: OSTEOPOROSIS
     Route: 048
     Dates: start: 20060101, end: 20080605
  2. CEROCRAL [Concomitant]
     Route: 048
  3. SOLETON [Concomitant]
     Route: 048
  4. ARICEPT [Concomitant]
     Route: 048
  5. ONEALFA [Concomitant]
     Route: 048
  6. MOBIC [Concomitant]
     Route: 048
  7. METHYCOBAL [Concomitant]
     Route: 065
  8. SELBEX [Concomitant]
     Route: 048

REACTIONS (1)
  - OSTEOMYELITIS [None]
